FAERS Safety Report 4568060-5 (Version None)
Quarter: 2005Q1

REPORT INFORMATION
  Report Type: 
  Country: None (occurrence: None)
  Receive Date: 20050202
  Receipt Date: 20050121
  Transmission Date: 20050727
  Serious: Yes (Hospitalization)
  Sender: FDA-Public Use
  Company Number: JP-BRISTOL-MYERS SQUIBB COMPANY-12834446

PATIENT
  Age: 75 Year
  Sex: Female

DRUGS (3)
  1. BIKLIN [Suspect]
     Indication: PSEUDOMONAS INFECTION
     Dosage: THERAPY WAS INTERRUPTED ON 19-NOV-2004 AND REINTRODUCED ON 22-NOV-2004 AT 200 MG DAILY.
     Route: 041
     Dates: start: 20041119, end: 20041123
  2. MEILAX [Concomitant]
  3. CYANOCOBALAMIN [Concomitant]

REACTIONS (1)
  - HYPOAESTHESIA [None]
